FAERS Safety Report 21270998 (Version 3)
Quarter: 2022Q3

REPORT INFORMATION
  Report Type: Spontaneous
  Country: US (occurrence: US)
  Receive Date: 20220830
  Receipt Date: 20220929
  Transmission Date: 20221027
  Serious: Yes (Other)
  Sender: FDA-Public Use
  Company Number: US-PFIZER INC-PV202200051756

PATIENT
  Age: 49 Year
  Sex: Female

DRUGS (1)
  1. IBRANCE [Suspect]
     Active Substance: PALBOCICLIB
     Dosage: UNK
     Dates: start: 20220824, end: 20220826

REACTIONS (8)
  - Anaphylactic reaction [Not Recovered/Not Resolved]
  - Swelling face [Unknown]
  - Swelling [Unknown]
  - Joint swelling [Unknown]
  - Dyspnoea [Unknown]
  - Feeling abnormal [Unknown]
  - Swelling [Unknown]
  - Dizziness [Unknown]

NARRATIVE: CASE EVENT DATE: 20220801
